FAERS Safety Report 10953334 (Version 1)
Quarter: 2015Q1

REPORT INFORMATION
  Report Type: Report from Study
  Country: CR (occurrence: CR)
  Receive Date: 20150325
  Receipt Date: 20150325
  Transmission Date: 20150721
  Serious: Yes (Hospitalization, Other)
  Sender: FDA-Public Use
  Company Number: CR-ABBVIE-15K-039-1363439-00

PATIENT
  Age: 60 Year
  Sex: Female

DRUGS (1)
  1. HUMIRA [Suspect]
     Active Substance: ADALIMUMAB
     Indication: RHEUMATOID ARTHRITIS
     Route: 058
     Dates: start: 20071115

REACTIONS (5)
  - Rib fracture [Recovering/Resolving]
  - Mobility decreased [Not Recovered/Not Resolved]
  - Spinal column injury [Unknown]
  - Muscle atrophy [Unknown]
  - Fall [Unknown]

NARRATIVE: CASE EVENT DATE: 201411
